FAERS Safety Report 7777131-1 (Version None)
Quarter: 2011Q3

REPORT INFORMATION
  Report Type: 
  Country: None (occurrence: None)
  Receive Date: 20110926
  Receipt Date: 20110920
  Transmission Date: 20111222
  Serious: Yes (Other)
  Sender: FDA-Public Use
  Company Number: FR-BRISTOL-MYERS SQUIBB COMPANY-16086928

PATIENT
  Age: 65 Year
  Sex: Female

DRUGS (1)
  1. REYATAZ [Suspect]

REACTIONS (2)
  - DIARRHOEA [None]
  - RENAL FAILURE [None]
